FAERS Safety Report 8963058 (Version 2)
Quarter: 2013Q1

REPORT INFORMATION
  Report Type: Spontaneous
  Country: US (occurrence: US)
  Receive Date: 20121214
  Receipt Date: 20130315
  Transmission Date: 20140127
  Serious: No
  Sender: FDA-Public Use
  Company Number: US-PFIZER INC-2012311891

PATIENT
  Sex: Female

DRUGS (4)
  1. IRINOTECAN HCL [Suspect]
     Indication: COLORECTAL CANCER METASTATIC
     Dosage: 1 DAY EVERY CYCLE
     Route: 042
  2. FLUOROURACIL [Suspect]
     Indication: COLORECTAL CANCER METASTATIC
     Dosage: EVERY CYCLE
     Route: 042
  3. LEUCOVORIN [Suspect]
     Indication: COLORECTAL CANCER METASTATIC
     Dosage: 1 DAY EVERY CYCLE
     Route: 042
  4. ZALTRAP [Suspect]
     Indication: COLORECTAL CANCER METASTATIC
     Dosage: 1 DAY EVERY CYCLE
     Route: 041

REACTIONS (2)
  - Hypertension [Unknown]
  - Rash [Unknown]
